FAERS Safety Report 13969492 (Version 2)
Quarter: 2017Q3

REPORT INFORMATION
  Report Type: Spontaneous
  Country: US (occurrence: US)
  Receive Date: 20170914
  Receipt Date: 20170929
  Transmission Date: 20171128
  Serious: No
  Sender: FDA-Public Use
  Company Number: US-GLAXOSMITHKLINE-US2017138458

PATIENT
  Sex: Female

DRUGS (3)
  1. TOPAMAX [Concomitant]
     Active Substance: TOPIRAMATE
  2. NUCALA [Suspect]
     Active Substance: MEPOLIZUMAB
     Indication: ASTHMA
     Dosage: UNK
  3. REMICADE [Concomitant]
     Active Substance: INFLIXIMAB

REACTIONS (2)
  - Headache [Unknown]
  - Condition aggravated [Unknown]
